FAERS Safety Report 6356189-0 (Version None)
Quarter: 2009Q3

REPORT INFORMATION
  Report Type: 
  Country: None (occurrence: None)
  Receive Date: 20090915
  Receipt Date: 20090911
  Transmission Date: 20100115
  Serious: Yes (Hospitalization)
  Sender: FDA-Public Use
  Company Number: DE-BAYER-200928351GPV

PATIENT
  Age: 72 Year
  Sex: Female

DRUGS (6)
  1. ADALAT [Suspect]
     Indication: DRUG USE FOR UNKNOWN INDICATION
     Route: 048
     Dates: start: 20090527, end: 20090729
  2. ADALAT [Suspect]
     Route: 048
     Dates: start: 20090805, end: 20090807
  3. MICARDIS [Suspect]
     Indication: DRUG USE FOR UNKNOWN INDICATION
     Route: 048
     Dates: start: 20090630, end: 20090729
  4. MICARDIS [Suspect]
     Route: 048
     Dates: start: 20090805, end: 20090807
  5. ANPLAG [Suspect]
     Indication: DRUG USE FOR UNKNOWN INDICATION
     Route: 048
     Dates: start: 20090714, end: 20090729
  6. ANPLAG [Suspect]
     Route: 048
     Dates: start: 20090805, end: 20090806

REACTIONS (1)
  - LIVER DISORDER [None]
